FAERS Safety Report 26172326 (Version 1)
Quarter: 2025Q4

REPORT INFORMATION
  Report Type: Report from Study
  Country: EU (occurrence: EU)
  Receive Date: 20251218
  Receipt Date: 20251218
  Transmission Date: 20260117
  Serious: Yes (Death, Other)
  Sender: CELLTRION
  Company Number: EU-CELLTRION INC.-2025CZ045033

PATIENT

DRUGS (1)
  1. INFLIXIMAB [Suspect]
     Active Substance: INFLIXIMAB
     Indication: Product used for unknown indication
     Dosage: UNK
     Route: 042
     Dates: end: 20251120

REACTIONS (6)
  - Fall [Fatal]
  - Spinal fracture [Fatal]
  - Status epilepticus [Fatal]
  - Loss of consciousness [Fatal]
  - Multiple organ dysfunction syndrome [Fatal]
  - Cardiac arrest [Fatal]

NARRATIVE: CASE EVENT DATE: 20251126
